FAERS Safety Report 9246126 (Version 1)
Quarter: 2013Q2

REPORT INFORMATION
  Report Type: Spontaneous
  Country: JP (occurrence: JP)
  Receive Date: 20130422
  Receipt Date: 20130422
  Transmission Date: 20140414
  Serious: Yes (Other)
  Sender: FDA-Public Use
  Company Number: JP-ELI_LILLY_AND_COMPANY-JP201304003950

PATIENT
  Sex: Female

DRUGS (2)
  1. FORTEO [Suspect]
     Dosage: UNK
     Route: 058
     Dates: start: 201011, end: 201106
  2. FORTEO [Suspect]
     Dosage: UNK
     Route: 058
     Dates: start: 2012

REACTIONS (2)
  - Spinal compression fracture [Recovering/Resolving]
  - Injection site bruising [Unknown]
